FAERS Safety Report 9670641 (Version 1)
Quarter: 2013Q4

REPORT INFORMATION
  Report Type: Report from Study
  Country: US (occurrence: US)
  Receive Date: 20131106
  Receipt Date: 20131106
  Transmission Date: 20140711
  Serious: Yes (Hospitalization, Other)
  Sender: FDA-Public Use
  Company Number: US-ABBVIE-13P-163-1162995-00

PATIENT
  Sex: Female

DRUGS (1)
  1. HUMIRA [Suspect]
     Indication: CROHN^S DISEASE
     Dates: start: 2010

REACTIONS (5)
  - Intestinal obstruction [Recovered/Resolved]
  - Incision site infection [Recovered/Resolved]
  - Malaise [Recovered/Resolved]
  - Psoriasis [Recovered/Resolved]
  - Alopecia [Recovered/Resolved]
